FAERS Safety Report 15265430 (Version 1)
Quarter: 2018Q3

REPORT INFORMATION
  Report Type: Spontaneous
  Country: US (occurrence: US)
  Receive Date: 20180810
  Receipt Date: 20180810
  Transmission Date: 20181010
  Serious: Yes (Death)
  Sender: FDA-Public Use
  Company Number: US-PFIZER INC-2018315980

PATIENT
  Age: 56 Year
  Sex: Female

DRUGS (7)
  1. FLUDARABINE PHOSPHATE. [Suspect]
     Active Substance: FLUDARABINE PHOSPHATE
     Indication: MYELODYSPLASTIC SYNDROME
     Dosage: UNK (REDUCED INTENSITY CONDITIONING)
  2. CYCLOPHOSPHAMIDE. [Concomitant]
     Active Substance: CYCLOPHOSPHAMIDE
     Indication: MYELODYSPLASTIC SYNDROME
     Dosage: UNK (REDUCED INTENSITY CONDITIONING)
  3. DAUNORUBICIN [Concomitant]
     Active Substance: DAUNORUBICIN
     Dosage: UNK (CONSOLIDATION)
  4. CLADRIBINE. [Concomitant]
     Active Substance: CLADRIBINE
     Indication: MYELODYSPLASTIC SYNDROME
     Dosage: UNK (INDUCTION)
  5. CYTARABINE. [Concomitant]
     Active Substance: CYTARABINE
     Dosage: UNK (CONSOLIDATION)
  6. DAUNORUBICIN [Concomitant]
     Active Substance: DAUNORUBICIN
     Indication: MYELODYSPLASTIC SYNDROME
     Dosage: UNK (INDUCTION)
  7. CYTARABINE. [Concomitant]
     Active Substance: CYTARABINE
     Indication: MYELODYSPLASTIC SYNDROME
     Dosage: UNK (INDUCTION)

REACTIONS (2)
  - Neurotoxicity [Fatal]
  - Leukoencephalopathy [Fatal]
